FAERS Safety Report 18643230 (Version 1)
Quarter: 2020Q4

REPORT INFORMATION
  Report Type: Report from Study
  Country: US (occurrence: US)
  Receive Date: 20201221
  Receipt Date: 20201221
  Transmission Date: 20210114
  Serious: No
  Sender: FDA-Public Use
  Company Number: NVSC2020US330834

PATIENT
  Age: 76 Year
  Sex: Female

DRUGS (1)
  1. ENTRESTO [Suspect]
     Active Substance: SACUBITRIL\VALSARTAN
     Indication: PRODUCT USED FOR UNKNOWN INDICATION
     Dosage: UNK UNK, BID
     Route: 048
     Dates: start: 20201119

REACTIONS (7)
  - Joint swelling [Unknown]
  - Dyspnoea exertional [Unknown]
  - Asthenia [Unknown]
  - Insomnia [Unknown]
  - Decreased activity [Unknown]
  - Blood potassium normal [Unknown]
  - Cough [Unknown]
